FAERS Safety Report 9433581 (Version 1)
Quarter: 2013Q3

REPORT INFORMATION
  Report Type: Report from Study
  Country: DK (occurrence: DK)
  Receive Date: 20130731
  Receipt Date: 20130731
  Transmission Date: 20140515
  Serious: Yes (Hospitalization, Other)
  Sender: FDA-Public Use
  Company Number: PHHO2013DK009754

PATIENT
  Age: 56 Year
  Sex: Male

DRUGS (5)
  1. EVEROLIMUS [Suspect]
     Indication: RENAL CELL CARCINOMA
     Dosage: 10 MG/DAY
     Route: 048
     Dates: start: 20130516, end: 20130530
  2. PANTOPRAZOLE [Concomitant]
     Dates: start: 20130516
  3. ENALAPRIL [Concomitant]
  4. PREDNISONE [Concomitant]
     Dates: start: 20130516
  5. UNIKALK BASIC [Concomitant]

REACTIONS (4)
  - Hyperglycaemia [Not Recovered/Not Resolved]
  - Polyuria [Not Recovered/Not Resolved]
  - Thirst [Not Recovered/Not Resolved]
  - Vision blurred [Unknown]
